FAERS Safety Report 9542145 (Version 1)
Quarter: 2013Q3

REPORT INFORMATION
  Report Type: Spontaneous
  Country: FR (occurrence: FR)
  Receive Date: 20130923
  Receipt Date: 20130923
  Transmission Date: 20140515
  Serious: Yes (Hospitalization)
  Sender: FDA-Public Use
  Company Number: FR-AMGEN-FRASP2013065850

PATIENT
  Age: 77 Year
  Sex: Female

DRUGS (14)
  1. ARANESP [Suspect]
     Indication: PLASMA CELL MYELOMA
     Dosage: 150 MUG, UNK
     Route: 058
     Dates: start: 201104, end: 201307
  2. ALKERAN /00006401/ [Suspect]
     Indication: PLASMA CELL MYELOMA
     Dosage: 10 MG, QD
     Route: 048
     Dates: start: 20090726, end: 20100928
  3. THALIDOMIDE [Suspect]
     Indication: PLASMA CELL MYELOMA
     Dosage: 100 MG, QD
     Route: 048
     Dates: start: 20090726, end: 201110
  4. PREDNISONE [Suspect]
     Indication: PLASMA CELL MYELOMA
     Dosage: 100 MG, QD
     Route: 048
     Dates: start: 20090926, end: 20100928
  5. REVLIMID [Suspect]
     Indication: PLASMA CELL MYELOMA
     Dosage: UNK
     Route: 048
     Dates: start: 201104, end: 201107
  6. DEXAMETHASON /00016001/ [Suspect]
  7. LASILIX                            /00032601/ [Concomitant]
     Dosage: UNK
     Dates: end: 20130806
  8. TAHOR [Concomitant]
  9. TRIATEC                            /00116401/ [Concomitant]
  10. DETENSIEL                          /00802601/ [Concomitant]
  11. CORDARONE [Concomitant]
  12. INEXIUM                            /01479302/ [Concomitant]
  13. PREVISCAN                          /00261401/ [Concomitant]
  14. LYTOS [Concomitant]

REACTIONS (2)
  - Pancytopenia [Recovering/Resolving]
  - Myelodysplastic syndrome [Recovering/Resolving]
